FAERS Safety Report 24378683 (Version 2)
Quarter: 2024Q4

REPORT INFORMATION
  Report Type: Spontaneous
  Country: US (occurrence: US)
  Receive Date: 20240930
  Receipt Date: 20241031
  Transmission Date: 20250115
  Serious: No
  Sender: ITALFARMACO SPA
  Company Number: US-ITALFARMACO SPA-2162207

PATIENT
  Sex: Male
  Weight: 36.3 kg

DRUGS (1)
  1. DUVYZAT [Suspect]
     Active Substance: GIVINOSTAT
     Indication: Muscular dystrophy
     Dates: start: 20240824

REACTIONS (1)
  - Platelet count decreased [Not Recovered/Not Resolved]
